FAERS Safety Report 22040576 (Version 1)
Quarter: 2023Q1

REPORT INFORMATION
  Report Type: Spontaneous
  Country: US (occurrence: None)
  Receive Date: 20230225
  Receipt Date: 20230225
  Transmission Date: 20230418
  Serious: No
  Sender: FDA-Public Use
  Company Number: None

PATIENT
  Sex: Male

DRUGS (1)
  1. RUXIENCE [Suspect]
     Active Substance: RITUXIMAB-PVVR

REACTIONS (7)
  - Infusion related reaction [None]
  - Chills [None]
  - Wheezing [None]
  - Chills [None]
  - Dyspnoea [None]
  - Groin pain [None]
  - Tachycardia [None]
